APPROVED DRUG PRODUCT: DAPSONE
Active Ingredient: DAPSONE
Strength: 5%
Dosage Form/Route: GEL;TOPICAL
Application: A209506 | Product #001 | TE Code: AB
Applicant: SUN PHARMA CANADA INC
Approved: Oct 16, 2017 | RLD: No | RS: No | Type: RX